FAERS Safety Report 16958543 (Version 1)
Quarter: 2019Q4

REPORT INFORMATION
  Report Type: Spontaneous
  Country: US (occurrence: US)
  Receive Date: 20191024
  Receipt Date: 20191024
  Transmission Date: 20200122
  Serious: No
  Sender: FDA-Public Use
  Company Number: US-BEH-2019108508

PATIENT
  Sex: Female

DRUGS (2)
  1. PRIVIGEN [Suspect]
     Active Substance: HUMAN IMMUNOGLOBULIN G
     Dosage: UNK
     Route: 065
     Dates: start: 2001
  2. PRIVIGEN [Suspect]
     Active Substance: HUMAN IMMUNOGLOBULIN G
     Indication: IMMUNODEFICIENCY COMMON VARIABLE
     Dosage: 35 GRAM, QMT
     Route: 042
     Dates: start: 20190826

REACTIONS (3)
  - Arthritis [Unknown]
  - Joint swelling [Unknown]
  - Arthralgia [Unknown]
